FAERS Safety Report 9474274 (Version 2)
Quarter: 2014Q2

REPORT INFORMATION
  Report Type: Spontaneous
  Country: US (occurrence: US)
  Receive Date: 20130823
  Receipt Date: 20140404
  Transmission Date: 20141212
  Serious: Yes (Death, Hospitalization)
  Sender: FDA-Public Use
  Company Number: US-GLAXOSMITHKLINE-A1038793A

PATIENT
  Age: 44 Year
  Sex: Female
  Weight: 54.1 kg

DRUGS (1)
  1. BENLYSTA [Suspect]
     Indication: SYSTEMIC LUPUS ERYTHEMATOSUS
     Dosage: 120MG EVERY 28 DAYS
     Route: 065
     Dates: start: 20120922, end: 20121130

REACTIONS (8)
  - Death [Fatal]
  - Pulmonary embolism [Unknown]
  - Cytomegalovirus infection [Unknown]
  - Viraemia [Unknown]
  - Hypotension [Unknown]
  - Pyrexia [Unknown]
  - Gastrointestinal haemorrhage [Unknown]
  - Sepsis [Unknown]
